FAERS Safety Report 19093830 (Version 4)
Quarter: 2021Q2

REPORT INFORMATION
  Report Type: Spontaneous
  Country: US (occurrence: US)
  Receive Date: 20210405
  Receipt Date: 20210602
  Transmission Date: 20210717
  Serious: Yes (Hospitalization, Other)
  Sender: FDA-Public Use
  Company Number: US-AMGEN-USASP2021047763

PATIENT
  Age: 38 Year
  Sex: Female
  Weight: 84 kg

DRUGS (7)
  1. ARANESP [Suspect]
     Active Substance: DARBEPOETIN ALFA
     Dosage: 150 MICROGRAM, QWK
     Route: 042
     Dates: end: 20210325
  2. COREG [Concomitant]
     Active Substance: CARVEDILOL
     Indication: HYPERTENSION
     Dosage: 25 MILLIGRAM, BID
     Dates: start: 20160609
  3. EPOGEN [Suspect]
     Active Substance: ERYTHROPOIETIN
     Indication: NEPHROGENIC ANAEMIA
     Dosage: UNK, 3 TIMES/WK (800 TO 2000 UNITS 3X1 WEEK)
     Route: 042
     Dates: start: 20201023
  4. PROCARDIA [Concomitant]
     Active Substance: NIFEDIPINE
     Indication: HYPERTENSION
     Dosage: 90 MILLIGRAM, QD
     Dates: start: 20180331
  5. EPOGEN [Suspect]
     Active Substance: ERYTHROPOIETIN
     Dosage: 15000 UNIT, 3 TIMES/WK
     Route: 042
     Dates: end: 20210226
  6. ARANESP [Suspect]
     Active Substance: DARBEPOETIN ALFA
     Indication: NEPHROGENIC ANAEMIA
     Dosage: 100 MICROGRAM, QWK
     Route: 042
     Dates: start: 20210226
  7. HYDRALAZINE [Concomitant]
     Active Substance: HYDRALAZINE HYDROCHLORIDE
     Indication: HYPERTENSION
     Dosage: 100 MILLIGRAM, BID
     Dates: start: 20200331

REACTIONS (4)
  - Drug specific antibody present [Unknown]
  - Drug ineffective [Not Recovered/Not Resolved]
  - Vertigo [Not Recovered/Not Resolved]
  - Anaemia [Unknown]

NARRATIVE: CASE EVENT DATE: 20201223
